FAERS Safety Report 13015940 (Version 3)
Quarter: 2020Q3

REPORT INFORMATION
  Report Type: Spontaneous
  Country: US (occurrence: US)
  Receive Date: 20161212
  Receipt Date: 20200818
  Transmission Date: 20201102
  Serious: Yes (Hospitalization)
  Sender: FDA-Public Use
  Company Number: US-JNJFOC-20161100933

PATIENT
  Age: 80 Year
  Sex: Male

DRUGS (16)
  1. ASPIRIN. [Suspect]
     Active Substance: ASPIRIN
     Indication: PRODUCT USED FOR UNKNOWN INDICATION
     Route: 065
  2. LOSARTAN. [Concomitant]
     Active Substance: LOSARTAN
     Route: 048
     Dates: start: 20130625, end: 20141101
  3. XARELTO [Suspect]
     Active Substance: RIVAROXABAN
     Indication: THROMBOSIS PROPHYLAXIS
     Route: 048
     Dates: start: 20141102, end: 20141103
  4. TORSEMIDE. [Concomitant]
     Active Substance: TORSEMIDE
     Route: 048
     Dates: start: 20100204
  5. TRAMADOL AND ACETAMINOPHEN [Concomitant]
     Active Substance: ACETAMINOPHEN\TRAMADOL HYDROCHLORIDE
     Route: 048
  6. XARELTO [Suspect]
     Active Substance: RIVAROXABAN
     Indication: CEREBROVASCULAR ACCIDENT PROPHYLAXIS
  7. GABAPENTIN. [Concomitant]
     Active Substance: GABAPENTIN
     Route: 048
  8. METOLAZONE. [Concomitant]
     Active Substance: METOLAZONE
     Route: 048
  9. ALLOPURINOL. [Concomitant]
     Active Substance: ALLOPURINOL
     Route: 048
  10. COLCRYS [Concomitant]
     Active Substance: COLCHICINE
     Route: 048
  11. GLIMEPIRIDE. [Concomitant]
     Active Substance: GLIMEPIRIDE
     Route: 048
     Dates: start: 20121231, end: 20141101
  12. XARELTO [Suspect]
     Active Substance: RIVAROXABAN
     Indication: ATRIAL FIBRILLATION
     Route: 048
     Dates: start: 20140815, end: 20141102
  13. DULOXETINE. [Concomitant]
     Active Substance: DULOXETINE
     Route: 048
     Dates: start: 20131217, end: 20150201
  14. PANTOPRAZOLE [Concomitant]
     Active Substance: PANTOPRAZOLE
     Route: 048
  15. METOPROLOL SUCCINATE. [Concomitant]
     Active Substance: METOPROLOL SUCCINATE
     Route: 048
  16. JANUVIA [Concomitant]
     Active Substance: SITAGLIPTIN PHOSPHATE
     Route: 048
     Dates: start: 20130625

REACTIONS (4)
  - Abdominal wall haematoma [Recovering/Resolving]
  - Pelvic haemorrhage [Recovering/Resolving]
  - Renal failure [Recovering/Resolving]
  - Gastrointestinal haemorrhage [Recovering/Resolving]

NARRATIVE: CASE EVENT DATE: 20141103
